FAERS Safety Report 22141613 (Version 2)
Quarter: 2023Q2

REPORT INFORMATION
  Report Type: Spontaneous
  Country: US (occurrence: US)
  Receive Date: 20230327
  Receipt Date: 20230504
  Transmission Date: 20230721
  Serious: No
  Sender: FDA-Public Use
  Company Number: US-PFIZER INC-202300128904

PATIENT
  Age: 75 Year
  Sex: Female
  Weight: 49.89 kg

DRUGS (1)
  1. PAXLOVID [Suspect]
     Active Substance: NIRMATRELVIR\RITONAVIR
     Indication: COVID-19 treatment
     Dosage: [PF-07321332 300 MG]/[RITONAVIR 100 MG]; 2X/DAY
     Dates: start: 20230227

REACTIONS (2)
  - Therapeutic response unexpected [Unknown]
  - Somnolence [Unknown]

NARRATIVE: CASE EVENT DATE: 20230201
